FAERS Safety Report 22010591 (Version 1)
Quarter: 2023Q1

REPORT INFORMATION
  Report Type: Spontaneous
  Country: US (occurrence: US)
  Receive Date: 20230220
  Receipt Date: 20230220
  Transmission Date: 20230418
  Serious: No
  Sender: FDA-Public Use
  Company Number: US-PERRIGO-22US015026

PATIENT
  Age: 22 Year
  Sex: Male
  Weight: 65.76 kg

DRUGS (1)
  1. NAPROXEN SODIUM [Suspect]
     Active Substance: NAPROXEN SODIUM
     Indication: Toothache
     Dosage: 220 MG, EVERY 3 TO 6 HOURS
     Route: 048
     Dates: start: 202210, end: 202210

REACTIONS (3)
  - Drug screen positive [Unknown]
  - Inappropriate schedule of product administration [Unknown]
  - Expired product administered [Unknown]

NARRATIVE: CASE EVENT DATE: 20221001
